FAERS Safety Report 9188627 (Version 3)
Quarter: 2013Q2

REPORT INFORMATION
  Report Type: Spontaneous
  Country: GB (occurrence: GB)
  Receive Date: 20130325
  Receipt Date: 20130617
  Transmission Date: 20140414
  Serious: Yes (Other)
  Sender: FDA-Public Use
  Company Number: PHHY2013GB026315

PATIENT
  Sex: 0

DRUGS (7)
  1. ALENDRONIC ACID [Suspect]
     Indication: OSTEOPOROSIS
     Dosage: 70 MG, QW
     Dates: start: 200803
  2. QUESTRAN [Suspect]
     Indication: BILE ACID MALABSORPTION
     Dosage: 1 DF, QID
     Route: 048
     Dates: start: 20100505
  3. ADCAL-D3 [Suspect]
     Dosage: 1 DF, BID
     Dates: start: 200803
  4. VITAMIN B12 [Concomitant]
  5. BENDROFLUMETHIAZIDE [Concomitant]
     Dosage: 2.5 MG, QD
  6. CODEINE [Concomitant]
     Dosage: 30 MG, 4 TABLETS/DAY
  7. COLOFAC [Concomitant]
     Indication: GASTROINTESTINAL PAIN
     Dosage: 135 MG, TID

REACTIONS (4)
  - Nephrolithiasis [Unknown]
  - Hypertension [Unknown]
  - Osteoporosis [Not Recovered/Not Resolved]
  - Drug interaction [Unknown]
